FAERS Safety Report 7133951-8 (Version None)
Quarter: 2010Q4

REPORT INFORMATION
  Report Type: 
  Country: None (occurrence: None)
  Receive Date: 20101203
  Receipt Date: 20101126
  Transmission Date: 20110411
  Serious: Yes (Hospitalization, Other)
  Sender: FDA-Public Use
  Company Number: US-RANBAXY-2010US-39821

PATIENT
  Age: 23 Year
  Sex: Male

DRUGS (1)
  1. FLUCONAZOLE [Suspect]
     Indication: TINEA VERSICOLOUR
     Dosage: 400 MG, UNK
     Route: 048

REACTIONS (2)
  - DEHYDRATION [None]
  - STEVENS-JOHNSON SYNDROME [None]
